FAERS Safety Report 5597318-6 (Version None)
Quarter: 2008Q1

REPORT INFORMATION
  Report Type: 
  Country: None (occurrence: None)
  Receive Date: 20080121
  Receipt Date: 20080111
  Transmission Date: 20080703
  Serious: Yes (Disabling)
  Sender: FDA-Public Use
  Company Number: FR-JNJFOC-20080102823

PATIENT
  Age: 52 Year
  Sex: Female

DRUGS (5)
  1. CAELYX [Suspect]
     Indication: BREAST CANCER METASTATIC
     Route: 042
  2. ZOMETA [Suspect]
     Indication: BREAST CANCER METASTATIC
     Route: 042
  3. SOLUPRED [Suspect]
     Indication: DRUG USE FOR UNKNOWN INDICATION
     Route: 048
  4. NAVELBINE [Concomitant]
     Indication: BREAST CANCER METASTATIC
     Route: 042
  5. HERCEPTIN [Concomitant]
     Indication: BREAST CANCER METASTATIC
     Route: 042

REACTIONS (1)
  - OSTEONECROSIS [None]
